FAERS Safety Report 25997603 (Version 1)
Quarter: 2025Q4

REPORT INFORMATION
  Report Type: Report from Study
  Country: US (occurrence: US)
  Receive Date: 20251104
  Receipt Date: 20251104
  Transmission Date: 20260117
  Serious: Yes (Other)
  Sender: ABBVIE
  Company Number: US-ABBVIE-6529708

PATIENT
  Age: 67 Year
  Sex: Female

DRUGS (2)
  1. IMBRUVICA [Suspect]
     Active Substance: IBRUTINIB
     Indication: Chronic lymphocytic leukaemia
     Route: 048
     Dates: start: 20230413
  2. IMBRUVICA [Suspect]
     Active Substance: IBRUTINIB
     Indication: Chronic lymphocytic leukaemia
     Route: 048

REACTIONS (28)
  - Surgery [Unknown]
  - Fibromyalgia [Unknown]
  - Dyspnoea [Unknown]
  - Pneumonia [Unknown]
  - Lung infiltration [Unknown]
  - Diarrhoea [Not Recovered/Not Resolved]
  - Infection [Unknown]
  - Skin laceration [Unknown]
  - Acne [Unknown]
  - Purulence [Unknown]
  - Depression [Unknown]
  - White blood cell count abnormal [Unknown]
  - Cellulitis [Unknown]
  - Depressed mood [Unknown]
  - Loss of personal independence in daily activities [Unknown]
  - Bone pain [Not Recovered/Not Resolved]
  - Traumatic pain [Unknown]
  - Sciatica [Unknown]
  - Arthralgia [Unknown]
  - Chest pain [Unknown]
  - General physical health deterioration [Unknown]
  - Impaired work ability [Unknown]
  - Asthenia [Unknown]
  - Emotional disorder [Unknown]
  - Skin fissures [Not Recovered/Not Resolved]
  - Social problem [Unknown]
  - Interstitial lung disease [Unknown]
  - Wound infection [Unknown]

NARRATIVE: CASE EVENT DATE: 20250301
